FAERS Safety Report 6771926-9 (Version None)
Quarter: 2010Q2

REPORT INFORMATION
  Report Type: 
  Country: None (occurrence: None)
  Receive Date: 20100616
  Receipt Date: 20100608
  Transmission Date: 20101027
  Serious: Yes (Other)
  Sender: FDA-Public Use
  Company Number: US-AMGEN-QUU416913

PATIENT
  Sex: Female

DRUGS (2)
  1. NPLATE [Suspect]
     Indication: IDIOPATHIC THROMBOCYTOPENIC PURPURA
     Dates: start: 20090915
  2. CORTICOSTEROIDS [Concomitant]

REACTIONS (5)
  - INTERVERTEBRAL DISC OPERATION [None]
  - LYMPHADENOPATHY [None]
  - NEPHROLITHIASIS [None]
  - RADICULITIS BRACHIAL [None]
  - RENAL COLIC [None]
